FAERS Safety Report 13569211 (Version 1)
Quarter: 2017Q2

REPORT INFORMATION
  Report Type: Spontaneous
  Country: CN (occurrence: CN)
  Receive Date: 20170522
  Receipt Date: 20170522
  Transmission Date: 20170830
  Serious: Yes (Hospitalization)
  Sender: FDA-Public Use
  Company Number: CN-ASTRAZENECA-2017SE52852

PATIENT
  Age: 61 Year
  Sex: Male

DRUGS (1)
  1. GEFITINIB [Suspect]
     Active Substance: GEFITINIB
     Indication: LUNG ADENOCARCINOMA
     Route: 048
     Dates: start: 20120401

REACTIONS (5)
  - Rash [Unknown]
  - Malignant transformation [Unknown]
  - Diarrhoea [Unknown]
  - Bone marrow failure [Recovering/Resolving]
  - Liver injury [Unknown]
